FAERS Safety Report 4594864-9 (Version None)
Quarter: 2005Q1

REPORT INFORMATION
  Report Type: 
  Country: None (occurrence: None)
  Receive Date: 20050223
  Receipt Date: 20050209
  Transmission Date: 20050727
  Serious: Yes (Other)
  Sender: FDA-Public Use
  Company Number: DEU-2005-0001265

PATIENT
  Age: 55 Year
  Sex: Male

DRUGS (2)
  1. OXYGESIC 80 MG(OXYCODONE HYDROCHLORIDE) CR TABLET [Suspect]
     Indication: PAIN
     Dosage: 80 MIG, TID; ORAL
     Route: 048
  2. CIPROFLOXACIN [Concomitant]

REACTIONS (2)
  - TOOTH DISORDER [None]
  - TOOTH LOSS [None]
